FAERS Safety Report 4287318-0 (Version None)
Quarter: 2004Q1

REPORT INFORMATION
  Report Type: 
  Country: None (occurrence: None)
  Receive Date: 20040126
  Receipt Date: 20030926
  Transmission Date: 20041129
  Serious: No
  Sender: FDA-Public Use
  Company Number: USA030638994

PATIENT
  Age: 81 Year
  Sex: Female
  Weight: 73 kg

DRUGS (7)
  1. FORTEO [Suspect]
     Indication: OSTEOPOROSIS
     Dosage: 20 UG/IN THE EVENING
     Dates: start: 20030606
  2. METHADONE HCL [Concomitant]
  3. OXYCODONE HCL [Concomitant]
  4. ALBUTEROL [Concomitant]
  5. ADVAIR DISKUS 100/50 [Concomitant]
  6. ARICEPT [Concomitant]
  7. TYLENOL [Concomitant]

REACTIONS (2)
  - DIFFICULTY IN WALKING [None]
  - DIZZINESS [None]
